FAERS Safety Report 6171069-1 (Version None)
Quarter: 2009Q2

REPORT INFORMATION
  Report Type: 
  Country: None (occurrence: None)
  Receive Date: 20090427
  Receipt Date: 20090414
  Transmission Date: 20091009
  Serious: Yes (Other)
  Sender: FDA-Public Use
  Company Number: 2009AL002307

PATIENT
  Age: 75 Year
  Sex: Male

DRUGS (2)
  1. SERTRALINE HCL [Suspect]
     Indication: ANXIETY
     Dosage: 25 MG; QD; PO
     Route: 048
     Dates: start: 20070201, end: 20090206
  2. ACETYLSALICYLIC ACID [Concomitant]

REACTIONS (1)
  - POST PROCEDURAL HAEMORRHAGE [None]
